FAERS Safety Report 17395931 (Version 1)
Quarter: 2020Q1

REPORT INFORMATION
  Report Type: Spontaneous
  Country: IN (occurrence: IN)
  Receive Date: 20200210
  Receipt Date: 20200210
  Transmission Date: 20200409
  Serious: Yes (Other)
  Sender: FDA-Public Use
  Company Number: IN-SEBELA IRELAND LIMITED-2020SEB00018

PATIENT
  Age: 55 Year
  Sex: Female

DRUGS (6)
  1. AZATHIOPRINE. [Suspect]
     Active Substance: AZATHIOPRINE
     Dosage: GRADUALLY INCREASED OVER A ^FEW MONTHS^
  2. UNSPECIFIED ORAL STEROIDS [Concomitant]
     Indication: VOGT-KOYANAGI-HARADA DISEASE
     Dosage: 1 MG/KG
     Route: 048
  3. UNSPECIFIED ORAL STEROIDS [Concomitant]
     Dosage: GRADUALLY TAPERED OVER A PERIOD OF 3 MONTHS
     Route: 048
  4. UNSPECIFIED ORAL STEROIDS [Concomitant]
     Dosage: 1 MG/KG
     Route: 048
  5. AZATHIOPRINE. [Suspect]
     Active Substance: AZATHIOPRINE
     Indication: VOGT-KOYANAGI-HARADA DISEASE
     Dosage: 1.5 MG/KG
     Route: 048
  6. UNSPECIFIED ORAL STEROIDS [Concomitant]
     Dosage: GRADUALLY TAPERED OVER A PERIOD OF 3 MONTHS AND STOPPED
     Route: 048

REACTIONS (3)
  - Disseminated tuberculosis [Recovering/Resolving]
  - Splenic granuloma [Recovered/Resolved]
  - Retinal infiltrates [Recovered/Resolved]
